FAERS Safety Report 4516567-9 (Version None)
Quarter: 2004Q4

REPORT INFORMATION
  Report Type: 
  Country: None (occurrence: None)
  Receive Date: 20041202
  Receipt Date: 20041110
  Transmission Date: 20050328
  Serious: Yes (Hospitalization)
  Sender: FDA-Public Use
  Company Number: CH-ROCHE-385891

PATIENT
  Age: 58 Year
  Sex: Female
  Weight: 83 kg

DRUGS (4)
  1. RIBAVIRIN [Suspect]
     Route: 048
     Dates: start: 20030912, end: 20030913
  2. PEG-INTRON [Suspect]
     Route: 058
     Dates: start: 20030912, end: 20030913
  3. BRUFEN [Suspect]
     Indication: DRUG USE FOR UNKNOWN INDICATION
     Dosage: DOSE WAS REPORTED AS NECESSARY. DURATION OF USE REPORTED AS LONG TERM.
     Route: 065
  4. ACTRAPID [Concomitant]
     Dosage: DURATION REPORTED AS LONG TERM

REACTIONS (3)
  - INFLUENZA LIKE ILLNESS [None]
  - MYOCARDIAL INFARCTION [None]
  - THROMBOCYTOPENIA [None]
